FAERS Safety Report 20970736 (Version 3)
Quarter: 2024Q1

REPORT INFORMATION
  Report Type: Spontaneous
  Country: US (occurrence: US)
  Receive Date: 20220616
  Receipt Date: 20240328
  Transmission Date: 20240410
  Serious: No
  Sender: FDA-Public Use
  Company Number: US-SA-SAC20220608000928

PATIENT
  Sex: Female

DRUGS (2)
  1. DUPIXENT [Suspect]
     Active Substance: DUPILUMAB
     Indication: Dermatitis atopic
     Dosage: 300 MG, QOW
     Route: 058
     Dates: start: 20211119
  2. DUPIXENT [Suspect]
     Active Substance: DUPILUMAB
     Indication: Dermatitis

REACTIONS (9)
  - Flushing [Unknown]
  - Photosensitivity reaction [Unknown]
  - Allergy to chemicals [Unknown]
  - Headache [Unknown]
  - Product use in unapproved indication [Unknown]
  - Pruritus [Unknown]
  - Skin burning sensation [Unknown]
  - Dermatitis atopic [Unknown]
  - Rash erythematous [Unknown]
